FAERS Safety Report 7110926-6 (Version None)
Quarter: 2010Q4

REPORT INFORMATION
  Report Type: 
  Country: None (occurrence: None)
  Receive Date: 20101118
  Receipt Date: 20101014
  Transmission Date: 20110411
  Serious: Yes (Other)
  Sender: FDA-Public Use
  Company Number: NL-AMGEN-QUU431094

PATIENT

DRUGS (2)
  1. ENBREL [Suspect]
     Dosage: 50 MG, QWK
     Dates: start: 20080601
  2. ENBREL [Suspect]
     Route: 058
     Dates: start: 20020208

REACTIONS (2)
  - SQUAMOUS CELL CARCINOMA [None]
  - URINARY BLADDER POLYP [None]
